FAERS Safety Report 7387335-8 (Version None)
Quarter: 2011Q1

REPORT INFORMATION
  Report Type: 
  Country: None (occurrence: None)
  Receive Date: 20110331
  Receipt Date: 20110322
  Transmission Date: 20110831
  Serious: No
  Sender: FDA-Public Use
  Company Number: JP-ELI_LILLY_AND_COMPANY-JP201102005744

PATIENT
  Age: 72 Year
  Sex: Male

DRUGS (2)
  1. GEMZAR [Suspect]
     Indication: BLADDER CANCER RECURRENT
     Dosage: 1 G, OTHER
     Route: 042
     Dates: start: 20110217
  2. CARBOPLATIN [Concomitant]
     Indication: BLADDER CANCER RECURRENT
     Dosage: 300 MG, OTHER
     Route: 042
     Dates: start: 20110217

REACTIONS (1)
  - INTESTINAL OBSTRUCTION [None]
